FAERS Safety Report 12844515 (Version 2)
Quarter: 2016Q4

REPORT INFORMATION
  Report Type: Report from Study
  Country: FR (occurrence: FR)
  Receive Date: 20161013
  Receipt Date: 20161018
  Transmission Date: 20170207
  Serious: Yes (Hospitalization, Other)
  Sender: FDA-Public Use
  Company Number: FR-JNJFOC-20161010832

PATIENT
  Age: 27 Year
  Sex: Male

DRUGS (1)
  1. STELARA [Suspect]
     Active Substance: USTEKINUMAB
     Indication: PSORIASIS
     Route: 058
     Dates: start: 20150408

REACTIONS (2)
  - Infectious mononucleosis [Recovering/Resolving]
  - Epstein-Barr virus infection [Recovering/Resolving]

NARRATIVE: CASE EVENT DATE: 201604
